FAERS Safety Report 21962158 (Version 3)
Quarter: 2023Q2

REPORT INFORMATION
  Report Type: Spontaneous
  Country: AR (occurrence: AR)
  Receive Date: 20230207
  Receipt Date: 20230605
  Transmission Date: 20230722
  Serious: Yes (Other)
  Sender: FDA-Public Use
  Company Number: AR-PFIZER INC-PV202300022739

PATIENT
  Age: 81 Year
  Sex: Female

DRUGS (3)
  1. SUTENT [Suspect]
     Active Substance: SUNITINIB MALATE
     Indication: Renal cancer
     Dosage: 37.5 MG, CYCLIC (4 WEEKS ON/2 WEEKS OFF-45 DAYS)
     Dates: start: 20210603, end: 2023
  2. SUTENT [Suspect]
     Active Substance: SUNITINIB MALATE
     Dosage: DAILY, SCHEME 4/2 REST
     Dates: start: 2023
  3. SUTENT [Suspect]
     Active Substance: SUNITINIB MALATE
     Dosage: DAILY, SCHEME 4/2 REST
     Dates: start: 2023

REACTIONS (6)
  - Joint injury [Not Recovered/Not Resolved]
  - Knee arthroplasty [Not Recovered/Not Resolved]
  - Impaired healing [Not Recovered/Not Resolved]
  - Cerebral disorder [Not Recovered/Not Resolved]
  - Arthropathy [Not Recovered/Not Resolved]
  - Product use complaint [Unknown]

NARRATIVE: CASE EVENT DATE: 20230101
